FAERS Safety Report 15622232 (Version 2)
Quarter: 2018Q4

REPORT INFORMATION
  Report Type: Spontaneous
  Country: FR (occurrence: FR)
  Receive Date: 20181115
  Receipt Date: 20181115
  Transmission Date: 20190205
  Serious: Yes (Other)
  Sender: FDA-Public Use
  Company Number: FR-PFIZER INC-2018464765

PATIENT
  Age: 59 Year
  Sex: Male

DRUGS (4)
  1. KARDEGIC [Suspect]
     Active Substance: ASPIRIN DL-LYSINE
     Indication: SUICIDE ATTEMPT
     Dosage: ONCE/SINGLE ADMINISTRATION
     Route: 048
     Dates: start: 20170114, end: 20170114
  2. TAHOR [Suspect]
     Active Substance: ATORVASTATIN CALCIUM
     Indication: SUICIDE ATTEMPT
     Dosage: ONCE/SINGLE ADMINISTRATION
     Route: 048
     Dates: start: 20170114, end: 20170114
  3. COVERSYL  (PERINDOPRIL ARGININE) [Suspect]
     Active Substance: PERINDOPRIL ARGININE
     Indication: SUICIDE ATTEMPT
     Dosage: ONCE/SINGLE ADMINISTRATION
     Route: 048
     Dates: start: 20170114, end: 20170114
  4. TENORMINE [Suspect]
     Active Substance: ATENOLOL
     Indication: SUICIDE ATTEMPT
     Dosage: ONCE/SINGLE ADMINISTRATION
     Route: 048
     Dates: start: 20170114, end: 20170114

REACTIONS (3)
  - Toxicity to various agents [Recovered/Resolved]
  - Bradycardia [Recovered/Resolved]
  - Hypotension [Recovered/Resolved]

NARRATIVE: CASE EVENT DATE: 20170114
